FAERS Safety Report 5926195-6 (Version None)
Quarter: 2008Q4

REPORT INFORMATION
  Report Type: 
  Country: None (occurrence: None)
  Receive Date: 20081017
  Receipt Date: 20081003
  Transmission Date: 20090506
  Serious: Yes (Other)
  Sender: FDA-Public Use
  Company Number: US-1167297

PATIENT
  Sex: Female
  Weight: 50.8029 kg

DRUGS (6)
  1. MULTI-VITAMINS [Suspect]
     Dosage: (ORAL)
     Route: 048
     Dates: start: 20080516, end: 20080720
  2. LEVOTHYROXINE SODIUM [Concomitant]
  3. ASPIRIN [Concomitant]
  4. IRON [Concomitant]
  5. CALCIUM CARBONATE [Concomitant]
  6. CENTRUM SILVER [Concomitant]

REACTIONS (5)
  - ARTHRALGIA [None]
  - BLOOD URINE PRESENT [None]
  - MALAISE [None]
  - RENAL DISORDER [None]
  - THROMBOSIS [None]
